FAERS Safety Report 20865370 (Version 1)
Quarter: 2022Q2

REPORT INFORMATION
  Report Type: Spontaneous
  Country: IE (occurrence: IE)
  Receive Date: 20220524
  Receipt Date: 20220524
  Transmission Date: 20220721
  Serious: Yes (Hospitalization)
  Sender: FDA-Public Use
  Company Number: IE-EXELIXIS-CABO-22052031

PATIENT
  Age: 52 Year
  Sex: Male

DRUGS (5)
  1. CABOMETYX [Suspect]
     Active Substance: CABOZANTINIB S-MALATE
     Indication: Clear cell renal cell carcinoma
     Dosage: 40 MG, QD
     Dates: start: 202004
  2. CABOMETYX [Suspect]
     Active Substance: CABOZANTINIB S-MALATE
     Dosage: 60 MG
     Dates: start: 202005, end: 202008
  3. CABOMETYX [Suspect]
     Active Substance: CABOZANTINIB S-MALATE
     Dosage: 40/60 MG ALTERNATE DAYS
  4. CABOMETYX [Suspect]
     Active Substance: CABOZANTINIB S-MALATE
     Dosage: 20/40 MG ALTERNATE DAYS
     Dates: start: 202104
  5. CABOMETYX [Suspect]
     Active Substance: CABOZANTINIB S-MALATE
     Dosage: 40 MG
     Dates: start: 20210914

REACTIONS (13)
  - Duodenal obstruction [Unknown]
  - Acute kidney injury [Recovered/Resolved]
  - Acute myocardial infarction [Unknown]
  - Hypertension [Recovered/Resolved]
  - Fistula [Recovering/Resolving]
  - Intestinal metastasis [Unknown]
  - Sepsis [Unknown]
  - Blood calcium increased [Recovered/Resolved]
  - Skin irritation [Unknown]
  - Skin fissures [Unknown]
  - Impaired healing [Unknown]
  - Diarrhoea [Unknown]
  - Wound dehiscence [Unknown]

NARRATIVE: CASE EVENT DATE: 20200801
